FAERS Safety Report 7985866-0 (Version None)
Quarter: 2011Q4

REPORT INFORMATION
  Report Type: 
  Country: None (occurrence: None)
  Receive Date: 20111216
  Receipt Date: 20111209
  Transmission Date: 20120403
  Serious: Yes (Hospitalization)
  Sender: FDA-Public Use
  Company Number: FR-UCBSA-047486

PATIENT
  Age: 13 Year
  Sex: Female

DRUGS (2)
  1. KEPPRA [Suspect]
     Indication: EPILEPSY
     Dosage: DOSE INCREASED
     Route: 048
     Dates: start: 20110101, end: 20110101
  2. KEPPRA [Suspect]
     Dosage: DAILY DOSE: 200 MG
     Route: 048
     Dates: start: 20110101, end: 20110101

REACTIONS (5)
  - HEADACHE [None]
  - MEMORY IMPAIRMENT [None]
  - MICTURITION DISORDER [None]
  - ABDOMINAL PAIN [None]
  - AFFECTIVE DISORDER [None]
